FAERS Safety Report 8811688 (Version 1)
Quarter: 2012Q4

REPORT INFORMATION
  Report Type: Spontaneous
  Country: US (occurrence: None)
  Receive Date: 20120926
  Receipt Date: 20120926
  Transmission Date: 20130627
  Serious: Yes (Other)
  Sender: FDA-Public Use
  Company Number: None

PATIENT
  Age: 60 Year
  Sex: Female
  Weight: 55.34 kg

DRUGS (1)
  1. BONIVA [Suspect]
     Indication: OSTEOPOROSIS
     Dates: start: 20071103, end: 20071203

REACTIONS (12)
  - Abdominal pain upper [None]
  - Back pain [None]
  - Headache [None]
  - Pyrexia [None]
  - Nausea [None]
  - Abdominal distension [None]
  - Diarrhoea [None]
  - Bone pain [None]
  - Arthralgia [None]
  - Myalgia [None]
  - Toothache [None]
  - Pain in jaw [None]
